FAERS Safety Report 5898303-7 (Version None)
Quarter: 2008Q3

REPORT INFORMATION
  Report Type: 
  Country: None (occurrence: None)
  Receive Date: 20080925
  Receipt Date: 20070829
  Transmission Date: 20090109
  Serious: No
  Sender: FDA-Public Use
  Company Number: A0677399A

PATIENT
  Age: 52 Year
  Sex: Male

DRUGS (2)
  1. WELLBUTRIN XL [Suspect]
     Indication: DEPRESSION
     Dosage: 300MG PER DAY
     Route: 048
     Dates: start: 20070606
  2. PREVACID [Concomitant]

REACTIONS (10)
  - DIZZINESS [None]
  - FATIGUE [None]
  - HEADACHE [None]
  - INFLUENZA LIKE ILLNESS [None]
  - LETHARGY [None]
  - MUSCULAR WEAKNESS [None]
  - MYALGIA [None]
  - NERVOUSNESS [None]
  - PANIC REACTION [None]
  - PARAESTHESIA [None]
